FAERS Safety Report 5674396-7 (Version None)
Quarter: 2008Q1

REPORT INFORMATION
  Report Type: 
  Country: None (occurrence: None)
  Receive Date: 20080320
  Receipt Date: 20080305
  Transmission Date: 20080703
  Serious: No
  Sender: FDA-Public Use
  Company Number: US-BAYER-200811630NA

PATIENT
  Sex: Female

DRUGS (6)
  1. AVELOX [Suspect]
     Indication: SINUSITIS
     Route: 048
     Dates: start: 20080111, end: 20080115
  2. ENBREL [Concomitant]
  3. METHOTREXATE [Concomitant]
  4. MOTRIN [Concomitant]
  5. ULTRAM [Concomitant]
  6. LEVAQUIN [Concomitant]

REACTIONS (7)
  - ANXIETY [None]
  - BODY TEMPERATURE INCREASED [None]
  - DYSKINESIA [None]
  - FORMICATION [None]
  - RESTLESSNESS [None]
  - TACHYCARDIA [None]
  - TREMOR [None]
